FAERS Safety Report 21133755 (Version 5)
Quarter: 2022Q4

REPORT INFORMATION
  Report Type: Spontaneous
  Country: CA (occurrence: CA)
  Receive Date: 20220726
  Receipt Date: 20221012
  Transmission Date: 20230113
  Serious: Yes (Other)
  Sender: FDA-Public Use
  Company Number: CA-PFIZER INC-202200902656

PATIENT
  Age: 55 Year
  Sex: Female

DRUGS (7)
  1. ABRILADA [Suspect]
     Active Substance: ADALIMUMAB-AFZB
     Indication: Rheumatoid arthritis
     Dosage: 40 MG, WEEKLY
     Route: 058
     Dates: start: 20220618, end: 20220618
  2. ABRILADA [Suspect]
     Active Substance: ADALIMUMAB-AFZB
     Dosage: 40 MG, EVERY 2 WEEKS, PREFILLED SYRINGE
     Route: 058
     Dates: start: 20220618
  3. ABRILADA [Suspect]
     Active Substance: ADALIMUMAB-AFZB
     Dosage: 40 MG, EVERY 2 WEEKS
     Route: 058
     Dates: start: 20220625
  4. ABRILADA [Suspect]
     Active Substance: ADALIMUMAB-AFZB
     Dosage: 1 DF, PREFILLED PEN. DOSAGE INFO REFER: REDACTED
     Route: 058
  5. ABRILADA [Suspect]
     Active Substance: ADALIMUMAB-AFZB
     Dosage: UNK
     Route: 058
     Dates: end: 20220921
  6. PREDNISONE [Concomitant]
     Active Substance: PREDNISONE
     Dosage: 1 DF
  7. PREDNISONE [Concomitant]
     Active Substance: PREDNISONE
     Dosage: 40 MG, WEEKLY, TAPERING 1 PILL
     Route: 065
     Dates: start: 202209

REACTIONS (12)
  - Joint swelling [Recovered/Resolved]
  - Drug ineffective [Unknown]
  - Off label use [Unknown]
  - Accidental exposure to product [Unknown]
  - Exposure via skin contact [Unknown]
  - Rash [Recovered/Resolved]
  - Liver function test increased [Not Recovered/Not Resolved]
  - Needle issue [Unknown]
  - Poor quality device used [Unknown]
  - Dysstasia [Unknown]
  - Asthenia [Unknown]
  - Loss of personal independence in daily activities [Unknown]

NARRATIVE: CASE EVENT DATE: 20220101
